FAERS Safety Report 13488022 (Version 1)
Quarter: 2017Q2

REPORT INFORMATION
  Report Type: Spontaneous
  Country: PL (occurrence: PL)
  Receive Date: 20170426
  Receipt Date: 20170426
  Transmission Date: 20170830
  Serious: Yes (Other)
  Sender: FDA-Public Use
  Company Number: PL-BRISTOL-MYERS SQUIBB COMPANY-BMS-2017-033540

PATIENT
  Age: 66 Year

DRUGS (1)
  1. OPDIVO [Suspect]
     Active Substance: NIVOLUMAB
     Indication: MALIGNANT MELANOMA
     Dosage: 3 MG/KG, Q2WK
     Route: 065

REACTIONS (7)
  - Pancreatic enzymes increased [Recovering/Resolving]
  - Gamma radiation therapy [Unknown]
  - C-reactive protein increased [Unknown]
  - Renal cyst [Unknown]
  - Nervous system disorder [Unknown]
  - Malignant neoplasm progression [Unknown]
  - Adrenal mass [Unknown]
